FAERS Safety Report 5961649-8 (Version None)
Quarter: 2008Q4

REPORT INFORMATION
  Report Type: 
  Country: None (occurrence: None)
  Receive Date: 20081121
  Receipt Date: 20081113
  Transmission Date: 20090506
  Serious: Yes (Hospitalization)
  Sender: FDA-Public Use
  Company Number: DE-ABBOTT-08P-062-0461324-00

PATIENT
  Age: 56 Year
  Sex: Female
  Weight: 48 kg

DRUGS (3)
  1. HUMIRA [Suspect]
     Indication: CROHN'S DISEASE
     Route: 058
  2. HUMIRA [Suspect]
     Dates: start: 20071004
  3. HUMIRA [Suspect]
     Dates: start: 20071121, end: 20071124

REACTIONS (4)
  - FALL [None]
  - PELVIC FRACTURE [None]
  - SYNCOPE [None]
  - VERTIGO [None]
